FAERS Safety Report 4276916-6 (Version None)
Quarter: 2004Q1

REPORT INFORMATION
  Report Type: 
  Country: None (occurrence: None)
  Receive Date: 20040120
  Receipt Date: 20040108
  Transmission Date: 20041129
  Serious: Yes (Hospitalization, Other)
  Sender: FDA-Public Use
  Company Number: 2003126280

PATIENT
  Age: 78 Year
  Sex: Male
  Weight: 110 kg

DRUGS (8)
  1. SORTIS (ATORVASTATIN) [Suspect]
     Indication: HYPERCHOLESTEROLAEMIA
     Dosage: 20 MG (DAILY), ORAL
     Route: 048
     Dates: start: 20031008, end: 20031208
  2. RANITIDINE [Concomitant]
  3. METOPROLOL SUCCINATE [Concomitant]
  4. DOXAZOSIN MESYLATE [Concomitant]
  5. GLIMEPIRIDE [Concomitant]
  6. FOSINOPRIL SODIUM [Concomitant]
  7. METFORMIN HCL [Concomitant]
  8. PREDNISOLONE [Concomitant]

REACTIONS (14)
  - ANGINA PECTORIS [None]
  - ASCITES [None]
  - CONDITION AGGRAVATED [None]
  - CORONARY ARTERY DISEASE [None]
  - DIABETES MELLITUS [None]
  - DYSPNOEA [None]
  - GENERALISED OEDEMA [None]
  - GLOMERULONEPHRITIS CHRONIC [None]
  - HYPERTENSIVE CRISIS [None]
  - HYPOPROTEINAEMIA [None]
  - NAUSEA [None]
  - NEPHROTIC SYNDROME [None]
  - PROSTATIC ADENOMA [None]
  - VERTIGO [None]
